FAERS Safety Report 8618718-3 (Version None)
Quarter: 2012Q3

REPORT INFORMATION
  Report Type: 
  Country: None (occurrence: None)
  Receive Date: 20120824
  Receipt Date: 20120814
  Transmission Date: 20120928
  Serious: Yes (Other)
  Sender: FDA-Public Use
  Company Number: US-JNJFOC-20120808420

PATIENT
  Sex: Male
  Weight: 92.99 kg

DRUGS (2)
  1. REMICADE [Suspect]
     Indication: CROHN'S DISEASE
     Route: 042
  2. REMICADE [Suspect]
     Route: 042

REACTIONS (10)
  - OSTEOARTHRITIS [None]
  - FATIGUE [None]
  - INFLUENZA LIKE ILLNESS [None]
  - INTERVERTEBRAL DISC COMPRESSION [None]
  - INTERVERTEBRAL DISC PROTRUSION [None]
  - MUSCLE SPASMS [None]
  - JOINT STIFFNESS [None]
  - ARTHROPOD BITE [None]
  - ARTHROPATHY [None]
  - JOINT CREPITATION [None]
